FAERS Safety Report 9234555 (Version 1)
Quarter: 2013Q2

REPORT INFORMATION
  Report Type: Spontaneous
  Country: US (occurrence: US)
  Receive Date: 20130416
  Receipt Date: 20130416
  Transmission Date: 20140414
  Serious: No
  Sender: FDA-Public Use
  Company Number: US-PFIZER INC-2013115787

PATIENT
  Age: 68 Year
  Sex: Male
  Weight: 104 kg

DRUGS (6)
  1. LIPITOR [Suspect]
     Indication: BLOOD CHOLESTEROL INCREASED
     Dosage: 20 MG, 1X/DAY
     Route: 048
  2. LIPITOR [Suspect]
     Dosage: 10 MG, 1X/DAY
     Route: 048
  3. LIPITOR [Suspect]
     Dosage: 10 MG, 1X/DAY
     Route: 048
  4. WARFARIN [Concomitant]
     Dosage: 5 MG, UNK
  5. OMEPRAZOLE [Concomitant]
     Indication: OESOPHAGEAL DISORDER
     Dosage: UNK
  6. ALLOPURINOL [Concomitant]
     Indication: NEPHROLITHIASIS
     Dosage: UNK

REACTIONS (1)
  - Muscle spasms [Recovered/Resolved]
